FAERS Safety Report 4957302-X (Version None)
Quarter: 2006Q1

REPORT INFORMATION
  Report Type: 
  Country: None (occurrence: None)
  Receive Date: 20060323
  Receipt Date: 20060308
  Transmission Date: 20060701
  Serious: Yes (Death)
  Sender: FDA-Public Use
  Company Number: US_0412109585

PATIENT
  Age: 15 Year
  Sex: Female

DRUGS (4)
  1. ZYPREXA [Suspect]
     Indication: BIPOLAR DISORDER
  2. GEODON [Concomitant]
  3. CONCERTA [Concomitant]
  4. ZOLOFT [Concomitant]

REACTIONS (7)
  - ANXIETY [None]
  - DIABETES MELLITUS [None]
  - DIABETIC COMA [None]
  - DIABETIC KETOACIDOSIS [None]
  - DRUG EFFECT DECREASED [None]
  - PAIN [None]
  - UNEVALUABLE EVENT [None]
